FAERS Safety Report 13199521 (Version 2)
Quarter: 2017Q1

REPORT INFORMATION
  Report Type: Spontaneous
  Country: US (occurrence: US)
  Receive Date: 20170208
  Receipt Date: 20170313
  Transmission Date: 20170428
  Serious: Yes (Hospitalization)
  Sender: FDA-Public Use
  Company Number: US-MALLINCKRODT-T201700369

PATIENT
  Age: 56 Year
  Sex: Male

DRUGS (20)
  1. FLORASTOR [Concomitant]
     Active Substance: SACCHAROMYCES CEREVISIAE
  2. MAGNESIUM [Concomitant]
     Active Substance: MAGNESIUM
  3. METOPROLOL. [Concomitant]
     Active Substance: METOPROLOL
  4. SIMVASTATIN. [Concomitant]
     Active Substance: SIMVASTATIN
  5. LEXAPRO [Concomitant]
     Active Substance: ESCITALOPRAM OXALATE
  6. TYLENOL [Concomitant]
     Active Substance: ACETAMINOPHEN
  7. CEFEPIME [Concomitant]
     Active Substance: CEFEPIME HYDROCHLORIDE
  8. COUMADIN [Concomitant]
     Active Substance: WARFARIN SODIUM
  9. COLACE [Concomitant]
     Active Substance: DOCUSATE SODIUM
  10. DILANTIN [Concomitant]
     Active Substance: PHENYTOIN
  11. DULCOLAX NOS [Concomitant]
     Active Substance: BISACODYL OR DOCUSATE SODIUM
  12. FERROUS SULFATE. [Concomitant]
     Active Substance: FERROUS SULFATE
  13. GABLOFEN [Suspect]
     Active Substance: BACLOFEN
     Indication: CEREBROVASCULAR ACCIDENT
     Dosage: 100 ?G, QD
     Dates: start: 20170116
  14. LEVETIRACETAM. [Concomitant]
     Active Substance: LEVETIRACETAM
  15. SENNA [Concomitant]
     Active Substance: SENNA LEAF\SENNOSIDES\SENNOSIDES A AND B
  16. AMLODIPINE [Concomitant]
     Active Substance: AMLODIPINE BESYLATE
  17. GLUCOPHAGE [Concomitant]
     Active Substance: METFORMIN HYDROCHLORIDE
  18. MILK OF MAGNESIA [Concomitant]
     Active Substance: MAGNESIUM HYDROXIDE
  19. NITROSTAT [Concomitant]
     Active Substance: NITROGLYCERIN
  20. GABLOFEN [Suspect]
     Active Substance: BACLOFEN
     Indication: MUSCLE SPASTICITY
     Dosage: 99 ?G, QD
     Route: 037

REACTIONS (16)
  - Withdrawal syndrome [Unknown]
  - Limb discomfort [Unknown]
  - Seizure [Unknown]
  - Agitation [Unknown]
  - Pyrexia [Unknown]
  - Muscle spasms [Unknown]
  - Hypertonia [Unknown]
  - Somnolence [Unknown]
  - Hypertension [Unknown]
  - Influenza [Unknown]
  - Arrhythmia [Unknown]
  - Device issue [Unknown]
  - Sepsis [Unknown]
  - Urinary tract infection [Unknown]
  - Pain [Unknown]
  - Bacteraemia [Unknown]

NARRATIVE: CASE EVENT DATE: 20170106
